FAERS Safety Report 24269119 (Version 6)
Quarter: 2025Q1

REPORT INFORMATION
  Report Type: Report from Study
  Country: CO (occurrence: CO)
  Receive Date: 20240830
  Receipt Date: 20250303
  Transmission Date: 20250408
  Serious: Yes (Hospitalization, Other)
  Sender: TAKEDA
  Company Number: CO-TAKEDA-2024TUS077722

PATIENT
  Age: 87 Year
  Sex: Male
  Weight: 46 kg

DRUGS (1)
  1. VEDOLIZUMAB [Suspect]
     Active Substance: VEDOLIZUMAB
     Indication: Colitis ulcerative

REACTIONS (10)
  - Rectal haemorrhage [Unknown]
  - Hip fracture [Unknown]
  - Accident at home [Unknown]
  - Fall [Unknown]
  - Abdominal pain [Unknown]
  - Hypophagia [Unknown]
  - Food intolerance [Unknown]
  - Weight decreased [Unknown]
  - Product availability issue [Unknown]
  - Decreased appetite [Unknown]

NARRATIVE: CASE EVENT DATE: 20240821
